FAERS Safety Report 10067361 (Version 2)
Quarter: 2014Q2

REPORT INFORMATION
  Report Type: Report from Study
  Country: GB (occurrence: GB)
  Receive Date: 20140409
  Receipt Date: 20140409
  Transmission Date: 20141212
  Serious: Yes (Hospitalization)
  Sender: FDA-Public Use
  Company Number: GB-ROCHE-765421

PATIENT
  Age: 69 Year
  Sex: Female
  Weight: 66.6 kg

DRUGS (4)
  1. CAPECITABINE [Suspect]
     Indication: BREAST CANCER METASTATIC
     Dosage: DOSE 2500MG/M2. TDD:2500 MG/M2. PERMANANTLY DISCONTINUED.
     Route: 048
     Dates: start: 20110224, end: 20110310
  2. TRASTUZUMAB [Suspect]
     Indication: BREAST CANCER METASTATIC
     Dosage: LOADING DOSE ADMINISTERED OVER 90 MINS.TAKEN FROM PROTOCOL.
     Route: 042
     Dates: start: 20110203, end: 20110203
  3. TRASTUZUMAB [Suspect]
     Dosage: MAINTENANCE DOSE: ADMINISTERED OVER 90 MINUTES
     Route: 042
     Dates: start: 20110224, end: 20110224
  4. TRASTUZUMAB [Suspect]
     Route: 042

REACTIONS (1)
  - Diverticulum [Recovered/Resolved]
